FAERS Safety Report 6436116-8 (Version None)
Quarter: 2009Q4

REPORT INFORMATION
  Report Type: 
  Country: None (occurrence: None)
  Receive Date: 20091105
  Receipt Date: 20091028
  Transmission Date: 20100525
  Serious: Yes (Hospitalization, Other)
  Sender: FDA-Public Use
  Company Number: THYM-1001281

PATIENT
  Age: 19 Year
  Sex: Male

DRUGS (3)
  1. THYMOGLOBULIN [Suspect]
     Indication: APLASTIC ANAEMIA
     Dosage: 281 MG, QD, INTRAVENOUS
     Route: 042
     Dates: start: 20090910, end: 20090915
  2. CYCLOSPORINE [Suspect]
     Indication: APLASTIC ANAEMIA
     Dosage: 175 MG, QD, ORAL ; 125 MG, QD, ORAL
     Route: 048
     Dates: start: 20090910, end: 20091018
  3. CYCLOSPORINE [Suspect]
     Indication: APLASTIC ANAEMIA
     Dosage: 175 MG, QD, ORAL ; 125 MG, QD, ORAL
     Route: 048
     Dates: start: 20091022

REACTIONS (4)
  - ABDOMINAL PAIN [None]
  - APPENDICITIS [None]
  - NEUTROPENIC SEPSIS [None]
  - PANCYTOPENIA [None]
